FAERS Safety Report 17283221 (Version 2)
Quarter: 2020Q1

REPORT INFORMATION
  Report Type: Spontaneous
  Country: US (occurrence: US)
  Receive Date: 20200117
  Receipt Date: 20200313
  Transmission Date: 20200409
  Serious: No
  Sender: FDA-Public Use
  Company Number: US-PFIZER INC-2020019606

PATIENT
  Age: 69 Year
  Sex: Female
  Weight: 77.98 kg

DRUGS (3)
  1. PREDNISONE. [Concomitant]
     Active Substance: PREDNISONE
     Dosage: UNK (6 DAYS)
  2. XELJANZ [Suspect]
     Active Substance: TOFACITINIB CITRATE
     Dosage: 10 MG, 2X/DAY
     Dates: start: 201810
  3. XELJANZ [Suspect]
     Active Substance: TOFACITINIB CITRATE
     Dosage: 5 MG, UNK

REACTIONS (1)
  - Laryngitis [Recovered/Resolved]

NARRATIVE: CASE EVENT DATE: 20200102
